FAERS Safety Report 8593675-7 (Version None)
Quarter: 2012Q3

REPORT INFORMATION
  Report Type: 
  Country: None (occurrence: None)
  Receive Date: 20120814
  Receipt Date: 20120807
  Transmission Date: 20120928
  Serious: Yes (Other)
  Sender: FDA-Public Use
  Company Number: BR-PFIZER INC-2012166299

PATIENT
  Age: 25 Year
  Sex: Female
  Weight: 47.166 kg

DRUGS (4)
  1. TOLTERODINE TARTRATE [Suspect]
     Indication: HYPERTONIC BLADDER
     Dosage: ONE TABLET (4 MG) DAILY
     Route: 048
     Dates: start: 20120625, end: 20120712
  2. YASMIN [Concomitant]
     Indication: CONTRACEPTION
     Dosage: UNK
     Dates: start: 20070101
  3. NEOSALDINA [Suspect]
     Dosage: UNK
  4. NARATRIPTAN [Suspect]
     Dosage: UNK

REACTIONS (5)
  - URINARY RETENTION [None]
  - THIRST [None]
  - MIGRAINE [None]
  - MALAISE [None]
  - DIARRHOEA [None]
